FAERS Safety Report 16697637 (Version 2)
Quarter: 2019Q3

REPORT INFORMATION
  Report Type: Spontaneous
  Country: US (occurrence: US)
  Receive Date: 20190813
  Receipt Date: 20190905
  Transmission Date: 20191004
  Serious: Yes (Other)
  Sender: FDA-Public Use
  Company Number: PHHY2019US188005

PATIENT
  Age: 8 Year
  Sex: Male

DRUGS (4)
  1. DABRAFENIB [Suspect]
     Active Substance: DABRAFENIB
     Indication: ROSAI-DORFMAN SYNDROME
     Dosage: 50 MG, BID
     Route: 048
     Dates: start: 201712
  2. PHENERGAN [Concomitant]
     Active Substance: PROMETHAZINE HYDROCHLORIDE
     Indication: PRODUCT USED FOR UNKNOWN INDICATION
     Dosage: 6.25 MG/ML, Q6H(5MG=4ML)
     Route: 048
  3. DABRAFENIB [Suspect]
     Active Substance: DABRAFENIB
     Indication: LANGERHANS^ CELL HISTIOCYTOSIS
  4. PERIACTIN [Concomitant]
     Active Substance: CYPROHEPTADINE HYDROCHLORIDE
     Indication: PRODUCT USED FOR UNKNOWN INDICATION
     Dosage: 4 MG, BID
     Route: 048

REACTIONS (7)
  - Pain in extremity [Recovered/Resolved]
  - Product use issue [Unknown]
  - Dry skin [Unknown]
  - Arthritis [Recovered/Resolved]
  - Pruritus [Unknown]
  - Arthralgia [Recovered/Resolved]
  - Product use in unapproved indication [Unknown]

NARRATIVE: CASE EVENT DATE: 201803
